FAERS Safety Report 4983550-9 (Version None)
Quarter: 2006Q2

REPORT INFORMATION
  Report Type: 
  Country: None (occurrence: None)
  Receive Date: 20060425
  Receipt Date: 20060425
  Transmission Date: 20061013
  Serious: Yes (Other)
  Sender: FDA-Public Use
  Company Number: None

PATIENT
  Age: 74 Year
  Sex: Male
  Weight: 119.3 kg

DRUGS (15)
  1. NIFEDIPINE [Suspect]
  2. SIMVASTATIN [Concomitant]
  3. FORMOTEROL FUMARATE [Concomitant]
  4. POTASSIUM CHLORIDE [Concomitant]
  5. TRIAMTERENE AND HYDROCHLOROTHIAZIDE [Concomitant]
  6. TESTOSTERONE CYPIONATE [Concomitant]
  7. LISINOPRIL [Concomitant]
  8. TRAZODONE HCL [Concomitant]
  9. SYNTHROID [Concomitant]
  10. METFORMIN HYDROCHLORIDE [Concomitant]
  11. LORAZEPAM [Concomitant]
  12. OMEPRAZOLE [Concomitant]
  13. ALBUTEROL [Concomitant]
  14. NITROGLYCERIN [Concomitant]
  15. INSULIN NOVOLIN 70/30 (NPH/REG) [Concomitant]

REACTIONS (2)
  - NAUSEA [None]
  - VOMITING [None]
